FAERS Safety Report 5527419-X (Version None)
Quarter: 2007Q4

REPORT INFORMATION
  Report Type: 
  Country: None (occurrence: None)
  Receive Date: 20071123
  Receipt Date: 20071109
  Transmission Date: 20080405
  Serious: Yes (Hospitalization)
  Sender: FDA-Public Use
  Company Number: 2007BI020807

PATIENT
  Age: 53 Year
  Sex: Male

DRUGS (12)
  1. AVONEX [Suspect]
     Indication: MULTIPLE SCLEROSIS
     Dosage: 30 UG;QW;IM
     Route: 030
     Dates: start: 20000701, end: 20030801
  2. AVONEX [Suspect]
     Indication: MULTIPLE SCLEROSIS
     Dosage: 30 UG;QW;IM
     Route: 030
     Dates: start: 20030901
  3. TOPAMAX [Concomitant]
  4. FLEXERIL [Concomitant]
  5. LEXAPRO [Concomitant]
  6. LISINOPRIL [Concomitant]
  7. PRILOSEC [Concomitant]
  8. PROCHLORPERAZINE [Concomitant]
  9. SEROQUEL [Concomitant]
  10. SCOPOLAMINE PATCH [Concomitant]
  11. ZANAFLEX [Concomitant]
  12. ZOMIG [Concomitant]

REACTIONS (5)
  - ADVERSE REACTION [None]
  - ASTHMA [None]
  - BRONCHOSPASM [None]
  - CONVULSION [None]
  - RESPIRATORY DISTRESS [None]
